FAERS Safety Report 8650742 (Version 3)
Quarter: 2012Q4

REPORT INFORMATION
  Report Type: 
  Country: RU (occurrence: RU)
  Receive Date: 20120705
  Receipt Date: 20121031
  Transmission Date: 20130627
  Serious: Yes (Other)
  Sender: FDA-Public Use
  Company Number: RU-VIIV HEALTHCARE LIMITED-B0812331A

PATIENT
  Age: 30 Year
  Sex: Female

DRUGS (4)
  1. COMBIVIR [Suspect]
     Indication: HIV INFECTION
     Dosage: 1U Unknown
     Route: 048
     Dates: start: 20120312
  2. KIVEXA [Suspect]
     Indication: HIV INFECTION
     Route: 048
     Dates: start: 20120505
  3. INVIRASE [Suspect]
     Indication: HIV INFECTION
     Route: 048
     Dates: start: 20120312
  4. RITONAVIR [Suspect]
     Indication: HIV INFECTION
     Route: 048
     Dates: start: 20120312

REACTIONS (3)
  - Anaemia [Unknown]
  - Live birth [Unknown]
  - Exposure during pregnancy [Unknown]
